FAERS Safety Report 19135667 (Version 2)
Quarter: 2021Q2

REPORT INFORMATION
  Report Type: Spontaneous
  Country: KR (occurrence: KR)
  Receive Date: 20210414
  Receipt Date: 20210419
  Transmission Date: 20210717
  Serious: Yes (Other)
  Sender: FDA-Public Use
  Company Number: KR-JNJFOC-20210356222

PATIENT

DRUGS (5)
  1. DUROGESIC D?TRANS [Suspect]
     Active Substance: FENTANYL
  2. DUROGESIC D?TRANS [Suspect]
     Active Substance: FENTANYL
  3. DUROGESIC D?TRANS [Suspect]
     Active Substance: FENTANYL
  4. DUROGESIC D?TRANS [Suspect]
     Active Substance: FENTANYL
     Indication: PAIN
     Dosage: DUROGESIC PATCH MATRIX 100.00 MCG/HR
     Route: 062
  5. TARGIN [Concomitant]
     Active Substance: NALOXONE HYDROCHLORIDE\OXYCODONE HYDROCHLORIDE

REACTIONS (4)
  - Drug dependence [Unknown]
  - Wrong technique in product usage process [Unknown]
  - Product adhesion issue [Unknown]
  - Drug resistance [Unknown]
